FAERS Safety Report 8115456-0 (Version None)
Quarter: 2012Q1

REPORT INFORMATION
  Report Type: 
  Country: None (occurrence: None)
  Receive Date: 20120206
  Receipt Date: 20120201
  Transmission Date: 20120608
  Serious: Yes (Hospitalization)
  Sender: FDA-Public Use
  Company Number: US-B.I. PHARMACEUTICALS,INC./RIDGEFIELD-2012-BP-01978BP

PATIENT
  Age: 80 Year
  Sex: Male

DRUGS (4)
  1. WATER PILL [Concomitant]
     Indication: HYPERTENSION
  2. PRADAXA [Suspect]
     Indication: ATRIAL FIBRILLATION
     Dosage: 300 MG
     Route: 048
     Dates: start: 20120103, end: 20120115
  3. PRADAXA [Suspect]
     Dosage: 300 MG
     Route: 048
     Dates: start: 20120123, end: 20120127
  4. THYROID PILL [Concomitant]
     Indication: HYPOTHYROIDISM

REACTIONS (1)
  - RECTAL HAEMORRHAGE [None]
